FAERS Safety Report 25955863 (Version 1)
Quarter: 2025Q4

REPORT INFORMATION
  Report Type: Spontaneous
  Country: JP (occurrence: JP)
  Receive Date: 20251024
  Receipt Date: 20251024
  Transmission Date: 20260118
  Serious: Yes (Hospitalization, Other)
  Sender: ALEXION PHARMACEUTICALS
  Company Number: JP-AstraZeneca-CH-00975631A

PATIENT
  Age: 81 Year

DRUGS (2)
  1. SYMBICORT [Suspect]
     Active Substance: BUDESONIDE\FORMOTEROL FUMARATE DIHYDRATE
     Indication: Chronic obstructive pulmonary disease
     Route: 065
  2. BREZTRI [Suspect]
     Active Substance: BUDESONIDE\FORMOTEROL\GLYCOPYRROLATE
     Indication: Productive cough
     Dosage: UNK
     Route: 065

REACTIONS (8)
  - Aortic aneurysm [Unknown]
  - Aspiration [Unknown]
  - Heat illness [Unknown]
  - Hypoxia [Unknown]
  - Oxygen saturation decreased [Unknown]
  - Dysstasia [Unknown]
  - Cough [Unknown]
  - Dizziness [Unknown]
